FAERS Safety Report 9065393 (Version 1)
Quarter: 2013Q1

REPORT INFORMATION
  Report Type: Report from Study
  Country: US (occurrence: US)
  Receive Date: 20130131
  Receipt Date: 20130131
  Transmission Date: 20140127
  Serious: No
  Sender: FDA-Public Use
  Company Number: US-ABBOTT-12P-163-1021561-00

PATIENT
  Sex: Female
  Weight: 99.88 kg

DRUGS (14)
  1. HUMIRA [Suspect]
     Indication: PSORIATIC ARTHROPATHY
     Dates: start: 2009, end: 2011
  2. HUMIRA [Suspect]
     Route: 058
     Dates: start: 2011, end: 201112
  3. HUMIRA [Suspect]
     Route: 058
     Dates: start: 201203, end: 201212
  4. HUMIRA [Suspect]
     Route: 058
     Dates: start: 201212
  5. METHOTREXATE [Concomitant]
     Indication: PSORIATIC ARTHROPATHY
  6. VITAMIN D3 [Concomitant]
     Indication: SUPPLEMENTATION THERAPY
  7. LOVASTATIN [Concomitant]
     Indication: BLOOD CHOLESTEROL INCREASED
  8. METFORMIN [Concomitant]
     Indication: DIABETES MELLITUS
  9. TRIAMTERENE [Concomitant]
     Indication: DIURETIC THERAPY
  10. ZYRTEC [Concomitant]
     Indication: SEASONAL ALLERGY
  11. FOLIC ACID [Concomitant]
     Indication: ILL-DEFINED DISORDER
  12. TERAZOTRIN [Concomitant]
     Indication: HYPERTENSION
  13. LEVOTHYROXINE [Concomitant]
     Indication: THYROID DISORDER
  14. MULTIVITAMIN [Concomitant]
     Indication: PRODUCT USED FOR UNKNOWN INDICATION

REACTIONS (13)
  - Finger deformity [Not Recovered/Not Resolved]
  - Injection site pain [Not Recovered/Not Resolved]
  - Blood potassium decreased [Not Recovered/Not Resolved]
  - Muscle spasms [Recovered/Resolved]
  - Muscle spasms [Recovered/Resolved]
  - Arthralgia [Not Recovered/Not Resolved]
  - Drug ineffective [Not Recovered/Not Resolved]
  - Injection site pain [Not Recovered/Not Resolved]
  - Bronchitis [Recovered/Resolved]
  - Sinusitis [Recovered/Resolved]
  - Muscle spasms [Not Recovered/Not Resolved]
  - Impaired driving ability [Not Recovered/Not Resolved]
  - Psoriasis [Not Recovered/Not Resolved]
